FAERS Safety Report 9284574 (Version 1)
Quarter: 2013Q2

REPORT INFORMATION
  Report Type: Spontaneous
  Country: GB (occurrence: GB)
  Receive Date: 20130512
  Receipt Date: 20130512
  Transmission Date: 20140414
  Serious: Yes (Hospitalization)
  Sender: FDA-Public Use
  Company Number: GB-TEVA-404108ISR

PATIENT
  Age: 24 Year
  Sex: 0

DRUGS (8)
  1. OLANZAPINE [Suspect]
     Dosage: 10 MILLIGRAM DAILY; PRIOR TO PREGNANCY, THEN 0-7 WEEKS OF GESTATION
  2. OLANZAPINE [Suspect]
     Dosage: 15 MILLIGRAM DAILY;
     Route: 064
  3. OLANZAPINE [Suspect]
     Dosage: 20 MILLIGRAM DAILY;
     Route: 064
  4. SODIUM VALPROATE [Concomitant]
     Dosage: PRIOR TO PREGNANCY, THEN 0-7 WEEKS OF GESTATION
     Route: 064
  5. FOLIC ACID [Concomitant]
     Dosage: 7-16 WEEKS OF GESTATION
     Route: 064
  6. PROMETHAZINE [Concomitant]
     Dosage: 16-28 WEEKS OF GESTATION
     Route: 064
  7. DIAZEPAM [Concomitant]
     Dosage: 16-28 WEEKS OF GESTATION; AS REQUIRED FROM 19+5 UNTIL 28 WEEKS OF GESTATION
     Route: 064
  8. LITHIUM [Concomitant]
     Dosage: FROM 19+5 WEEKS OF GESTATION; WITHDRAWN DURING LABOUR (36 HOURS)
     Route: 064

REACTIONS (2)
  - Mania [Unknown]
  - Caesarean section [Unknown]
